FAERS Safety Report 25112455 (Version 3)
Quarter: 2025Q4

REPORT INFORMATION
  Report Type: Spontaneous
  Country: US (occurrence: None)
  Receive Date: 20250324
  Receipt Date: 20251031
  Transmission Date: 20260118
  Serious: No
  Sender: UCB
  Company Number: US-UCBSA-2024061283

PATIENT
  Age: 43 Year

DRUGS (6)
  1. BIMZELX [Suspect]
     Active Substance: BIMEKIZUMAB-BKZX
     Indication: Product used for unknown indication
  2. SPEVIGO [Suspect]
     Active Substance: SPESOLIMAB-SBZO
     Indication: Pustular psoriasis
     Dosage: EV 2 WEEKS(QOW)
  3. SPEVIGO [Suspect]
     Active Substance: SPESOLIMAB-SBZO
     Dosage: EV 2 WEEKS(QOW)
  4. SPEVIGO [Suspect]
     Active Substance: SPESOLIMAB-SBZO
     Dosage: 150 MILLIGRAM
  5. SOLU-MEDROL [Concomitant]
     Active Substance: METHYLPREDNISOLONE SODIUM SUCCINATE
     Indication: Product used for unknown indication
  6. zodel [Concomitant]
     Indication: Product used for unknown indication

REACTIONS (4)
  - Hypotension [Unknown]
  - Urinary tract infection [Recovering/Resolving]
  - Pruritus [Recovering/Resolving]
  - Flank pain [Unknown]
